FAERS Safety Report 6634431-6 (Version None)
Quarter: 2010Q1

REPORT INFORMATION
  Report Type: 
  Country: None (occurrence: None)
  Receive Date: 20100315
  Receipt Date: 20100303
  Transmission Date: 20100710
  Serious: Yes (Hospitalization)
  Sender: FDA-Public Use
  Company Number: DE-ROCHE-688828

PATIENT
  Sex: Female
  Weight: 64 kg

DRUGS (5)
  1. BEVACIZUMAB [Suspect]
     Indication: BREAST CANCER
     Dosage: TEMPORARILY INTERRUPTED, DOSE AS PER PROTOCOL: 15 MG/KG, DAY 1, LAST DOSE PRIOR TO SAE: 24 FEB 10
     Route: 042
     Dates: start: 20091125
  2. CAPECITABINE [Suspect]
     Indication: BREAST CANCER
     Dosage: DRUG TEMPORARILY INTERRUPTED
     Route: 065
     Dates: start: 20091125
  3. VINORELBINE [Suspect]
     Indication: BREAST CANCER
     Dosage: DRUG TEMPORARILY INTERRUPTED, DOSE FROM PROTOCOL, DAY 1+8, LAST DOSE PRIOR TO SAE: 24 FEB 2010
     Route: 042
     Dates: start: 20091125
  4. NOVOLIZER [Concomitant]
  5. ENALAPRIL MALEATE [Concomitant]
     Dosage: TDD: 1-0-1
     Dates: start: 20091118

REACTIONS (1)
  - INFARCTION [None]
